FAERS Safety Report 16710700 (Version 1)
Quarter: 2019Q3

REPORT INFORMATION
  Report Type: Spontaneous
  Country: FR (occurrence: FR)
  Receive Date: 20190816
  Receipt Date: 20190816
  Transmission Date: 20191004
  Serious: Yes (Disabling)
  Sender: FDA-Public Use
  Company Number: FR-MYLANLABS-2019M1075547

PATIENT
  Age: 5 Year
  Sex: Male

DRUGS (3)
  1. ALPRAZOLAM. [Suspect]
     Active Substance: ALPRAZOLAM
     Indication: PANIC ATTACK
     Dosage: UNK
     Route: 064
     Dates: start: 20121023, end: 20130716
  2. HALDOL [Suspect]
     Active Substance: HALOPERIDOL
     Indication: PANIC ATTACK
     Dosage: 1 MILLIGRAM, QD
     Route: 064
     Dates: start: 20121023, end: 20130716
  3. SERTRALINE [Suspect]
     Active Substance: SERTRALINE HYDROCHLORIDE
     Indication: PANIC ATTACK
     Dosage: 50 MILLIGRAM, QD
     Route: 064
     Dates: start: 20121023, end: 20130716

REACTIONS (2)
  - Intellectual disability [Not Recovered/Not Resolved]
  - Psychomotor retardation [Not Recovered/Not Resolved]

NARRATIVE: CASE EVENT DATE: 20190213
